FAERS Safety Report 16337057 (Version 2)
Quarter: 2019Q2

REPORT INFORMATION
  Report Type: Report from Study
  Country: CA (occurrence: CA)
  Receive Date: 20190521
  Receipt Date: 20190628
  Transmission Date: 20190711
  Serious: Yes (Other)
  Sender: FDA-Public Use
  Company Number: CA-OTSUKA-2018_008635

PATIENT
  Age: 27 Year
  Sex: Male

DRUGS (1)
  1. ABILIFY MAINTENA [Suspect]
     Active Substance: ARIPIPRAZOLE
     Indication: PRODUCT USED FOR UNKNOWN INDICATION
     Dosage: 300 MG, QM
     Route: 030

REACTIONS (4)
  - Blood pressure increased [Recovered/Resolved]
  - Depression [Not Recovered/Not Resolved]
  - Prescribed underdose [Unknown]
  - Inappropriate schedule of product administration [Unknown]

NARRATIVE: CASE EVENT DATE: 20180403
